FAERS Safety Report 8037212-4 (Version None)
Quarter: 2012Q1

REPORT INFORMATION
  Report Type: 
  Country: None (occurrence: None)
  Receive Date: 20120111
  Receipt Date: 20120103
  Transmission Date: 20120608
  Serious: Yes (Other)
  Sender: FDA-Public Use
  Company Number: US-COVIDIEN/TYCO HEALTHCARE/MALLINCKRODT-T201200006

PATIENT
  Sex: Female
  Weight: 58.957 kg

DRUGS (1)
  1. METHADOSE [Suspect]
     Indication: DRUG WITHDRAWAL MAINTENANCE THERAPY
     Dosage: 270 MG, QD
     Route: 048

REACTIONS (1)
  - VISUAL ACUITY REDUCED [None]
